FAERS Safety Report 12679987 (Version 2)
Quarter: 2016Q3

REPORT INFORMATION
  Report Type: Spontaneous
  Country: HU (occurrence: HU)
  Receive Date: 20160824
  Receipt Date: 20160908
  Transmission Date: 20161109
  Serious: Yes (Other)
  Sender: FDA-Public Use
  Company Number: HU-SUN PHARMACEUTICAL INDUSTRIES LTD-2016R1-122697

PATIENT
  Age: 24 Year
  Sex: Female

DRUGS (3)
  1. IFOSFAMIDE. [Suspect]
     Active Substance: IFOSFAMIDE
     Indication: DISEASE PROGRESSION
     Dosage: UNK
     Route: 065
     Dates: start: 20100107, end: 20100111
  2. ETOPOSIDE. [Suspect]
     Active Substance: ETOPOSIDE
     Indication: DISEASE PROGRESSION
     Dosage: UNK
     Route: 065
     Dates: start: 20100107, end: 20100111
  3. CARBOPLATIN. [Suspect]
     Active Substance: CARBOPLATIN
     Indication: DISEASE PROGRESSION
     Dosage: UNK
     Route: 065
     Dates: start: 20100107, end: 20100111

REACTIONS (2)
  - Bone marrow failure [Recovered/Resolved]
  - Drug intolerance [Unknown]

NARRATIVE: CASE EVENT DATE: 201001
